FAERS Safety Report 24278629 (Version 5)
Quarter: 2025Q1

REPORT INFORMATION
  Report Type: Report from Study
  Country: US (occurrence: US)
  Receive Date: 20240903
  Receipt Date: 20250218
  Transmission Date: 20250408
  Serious: Yes (Hospitalization, Other)
  Sender: SUNOVION
  Company Number: US-SUMITOMO PHARMA SWITZERLAND GMBH-2024SPA001022

PATIENT

DRUGS (2)
  1. ORGOVYX [Suspect]
     Active Substance: RELUGOLIX
     Indication: Prostate cancer
     Dosage: 360 MG, SINGLE
     Route: 048
  2. ORGOVYX [Suspect]
     Active Substance: RELUGOLIX
     Dosage: 120 MG, QD
     Route: 048
     Dates: start: 20230908

REACTIONS (10)
  - Blood disorder [Unknown]
  - Myocardial infarction [Unknown]
  - Cardiac disorder [Unknown]
  - Pyrexia [Unknown]
  - Glucose tolerance impaired [Unknown]
  - Gait disturbance [Unknown]
  - Fall [Unknown]
  - Balance disorder [Unknown]
  - Somnolence [Unknown]
  - Product dose omission issue [Unknown]
